FAERS Safety Report 10069884 (Version 2)
Quarter: 2014Q2

REPORT INFORMATION
  Report Type: Spontaneous
  Country: US (occurrence: US)
  Receive Date: 20140410
  Receipt Date: 20140508
  Transmission Date: 20141212
  Serious: Yes (Death, Hospitalization)
  Sender: FDA-Public Use
  Company Number: 2014SP001806

PATIENT
  Sex: Male
  Weight: 75.5 kg

DRUGS (5)
  1. FLUOROURACIL [Suspect]
     Indication: ADENOCARCINOMA OF COLON
     Route: 042
     Dates: start: 20131105, end: 20140116
  2. FLUOROURACIL [Suspect]
     Indication: ADENOCARCINOMA OF COLON
     Route: 042
  3. OXALIPLATIN [Suspect]
     Indication: ADENOCARCINOMA OF COLON
     Route: 042
     Dates: start: 20131105, end: 20140114
  4. FOLINIC ACID [Suspect]
     Indication: ADENOCARCINOMA OF COLON
     Route: 042
     Dates: start: 20131105, end: 20140114
  5. CELECOXIB [Suspect]
     Indication: ADENOCARCINOMA OF COLON
     Route: 048
     Dates: start: 20131105, end: 20140306

REACTIONS (4)
  - Pneumonitis [Fatal]
  - Sepsis [Fatal]
  - Pneumonia aspiration [Fatal]
  - Pulmonary oedema [Fatal]
